FAERS Safety Report 7293318-9 (Version None)
Quarter: 2011Q1

REPORT INFORMATION
  Report Type: 
  Country: None (occurrence: None)
  Receive Date: 20110215
  Receipt Date: 20110210
  Transmission Date: 20110831
  Serious: Yes (Death, Other)
  Sender: FDA-Public Use
  Company Number: PHHY2011IT11311

PATIENT
  Sex: Female

DRUGS (1)
  1. FLUCONAZOLE [Suspect]
     Indication: CULTURE POSITIVE
     Dosage: 200 MG, UNK
     Route: 042
     Dates: start: 20100528, end: 20100713

REACTIONS (2)
  - DEATH [None]
  - HEPATIC ENZYME INCREASED [None]
